FAERS Safety Report 12158368 (Version 1)
Quarter: 2016Q1

REPORT INFORMATION
  Report Type: Spontaneous
  Country: US (occurrence: US)
  Receive Date: 20160308
  Receipt Date: 20160308
  Transmission Date: 20160526
  Serious: Yes (Hospitalization)
  Sender: FDA-Public Use
  Company Number: US-JNJFOC-20150403891

PATIENT
  Sex: Female

DRUGS (1)
  1. IMBRUVICA [Suspect]
     Active Substance: IBRUTINIB
     Indication: CHRONIC LYMPHOCYTIC LEUKAEMIA
     Route: 048
     Dates: start: 20140813, end: 201410

REACTIONS (4)
  - Post herpetic neuralgia [Unknown]
  - Atrial fibrillation [Unknown]
  - Pneumonia [Unknown]
  - Herpes zoster [Unknown]

NARRATIVE: CASE EVENT DATE: 201410
